FAERS Safety Report 5812239-9 (Version None)
Quarter: 2008Q3

REPORT INFORMATION
  Report Type: 
  Country: None (occurrence: None)
  Receive Date: 20080716
  Receipt Date: 20080709
  Transmission Date: 20090109
  Serious: Yes (Other)
  Sender: FDA-Public Use
  Company Number: ES-MERCK-0807ESP00015

PATIENT
  Age: 56 Year
  Sex: Female

DRUGS (1)
  1. JANUVIA [Suspect]
     Indication: DIABETES MELLITUS
     Route: 048
     Dates: start: 20080222, end: 20080306

REACTIONS (4)
  - HYPERHIDROSIS [None]
  - MYALGIA [None]
  - NAUSEA [None]
  - SOMNOLENCE [None]
